FAERS Safety Report 4886848-8 (Version None)
Quarter: 2006Q1

REPORT INFORMATION
  Report Type: 
  Country: None (occurrence: None)
  Receive Date: 20060119
  Receipt Date: 20060109
  Transmission Date: 20060701
  Serious: Yes (Other)
  Sender: FDA-Public Use
  Company Number: 2006006169

PATIENT
  Age: 22 Year
  Sex: Male
  Weight: 69.8539 kg

DRUGS (2)
  1. DILANTIN [Suspect]
     Indication: EPILEPSY
     Dosage: 300 MG (1 D), ORAL
     Route: 048
     Dates: start: 20040922
  2. LAMICTAL [Concomitant]

REACTIONS (4)
  - ANTICONVULSANT DRUG LEVEL DECREASED [None]
  - CONVULSION [None]
  - PETIT MAL EPILEPSY [None]
  - TREMOR [None]
